FAERS Safety Report 14315053 (Version 1)
Quarter: 2017Q4

REPORT INFORMATION
  Report Type: Report from Study
  Country: NL (occurrence: NL)
  Receive Date: 20171221
  Receipt Date: 20171221
  Transmission Date: 20180321
  Serious: No
  Sender: FDA-Public Use
  Company Number: NL-TEVA-788486ROM

PATIENT
  Age: 58 Year
  Sex: Male
  Weight: 119 kg

DRUGS (2)
  1. THIOSIX TABLETS [Suspect]
     Active Substance: THIOGUANINE ANHYDROUS
     Dosage: 25 MILLIGRAM DAILY;
  2. PREDNISONE. [Suspect]
     Active Substance: PREDNISONE
     Dates: end: 20170701

REACTIONS (3)
  - Diarrhoea [Recovered/Resolved]
  - Haematochezia [Recovered/Resolved]
  - Abnormal faeces [Recovered/Resolved]

NARRATIVE: CASE EVENT DATE: 20170708
